FAERS Safety Report 6243842-2 (Version None)
Quarter: 2009Q2

REPORT INFORMATION
  Report Type: 
  Country: None (occurrence: None)
  Receive Date: 20090623
  Receipt Date: 20081119
  Transmission Date: 20091009
  Serious: No
  Sender: FDA-Public Use
  Company Number: 2008SP023419

PATIENT
  Age: 12 Year
  Sex: Female

DRUGS (7)
  1. TEMODAL [Suspect]
     Indication: ASTROCYTOMA
     Dosage: 160 MG/M2;PO ; PO ; GT
     Route: 048
  2. TEMODAL [Suspect]
     Indication: GLIOBLASTOMA
     Dosage: 160 MG/M2;PO ; PO ; GT
     Route: 048
  3. TEMODAL [Suspect]
     Indication: ASTROCYTOMA
     Dosage: 160 MG/M2;PO ; PO ; GT
     Route: 048
  4. TEMODAL [Suspect]
     Indication: GLIOBLASTOMA
     Dosage: 160 MG/M2;PO ; PO ; GT
     Route: 048
  5. TEMODAL [Suspect]
     Indication: ASTROCYTOMA
     Dosage: 160 MG/M2;PO ; PO ; GT
     Route: 048
  6. TEMODAL [Suspect]
     Indication: GLIOBLASTOMA
     Dosage: 160 MG/M2;PO ; PO ; GT
     Route: 048
  7. ETOPOSIDE [Concomitant]

REACTIONS (6)
  - ACTIVITIES OF DAILY LIVING IMPAIRED [None]
  - ALTERED STATE OF CONSCIOUSNESS [None]
  - ASTROCYTOMA [None]
  - BRAIN COMPRESSION [None]
  - CONVULSION [None]
  - FEBRILE NEUTROPENIA [None]
